FAERS Safety Report 23461397 (Version 1)
Quarter: 2024Q1

REPORT INFORMATION
  Report Type: Other
  Country: US (occurrence: None)
  Receive Date: 20240131
  Receipt Date: 20240131
  Transmission Date: 20240410
  Serious: Yes (Death, Hospitalization)
  Sender: FDA-Public Use
  Company Number: US-Navinta LLC-000484

PATIENT
  Age: 75 Year
  Sex: Male

DRUGS (5)
  1. CARMUSTINE [Suspect]
     Active Substance: CARMUSTINE
     Indication: Product used for unknown indication
     Dosage: 300 MG/M2
  2. CYCLOPHOSPHAMIDE [Concomitant]
     Active Substance: CYCLOPHOSPHAMIDE
     Indication: Peripheral T-cell lymphoma unspecified
  3. ETOPOSIDE [Concomitant]
     Active Substance: ETOPOSIDE
     Indication: Peripheral T-cell lymphoma unspecified
  4. VINCRISTINE [Concomitant]
     Active Substance: VINCRISTINE
     Indication: Peripheral T-cell lymphoma unspecified
  5. PREDNISONE [Concomitant]
     Active Substance: PREDNISONE
     Indication: Peripheral T-cell lymphoma unspecified

REACTIONS (1)
  - Stress cardiomyopathy [Fatal]
